FAERS Safety Report 15578234 (Version 1)
Quarter: 2018Q4

REPORT INFORMATION
  Report Type: Spontaneous
  Country: US (occurrence: US)
  Receive Date: 20181102
  Receipt Date: 20181102
  Transmission Date: 20190205
  Serious: Yes (Death, Other)
  Sender: FDA-Public Use
  Company Number: US-AUROBINDO-AUR-APL-2018-052662

PATIENT
  Age: 53 Year
  Sex: Female

DRUGS (1)
  1. IBUPROFEN. [Suspect]
     Active Substance: IBUPROFEN
     Indication: PRODUCT USED FOR UNKNOWN INDICATION
     Dosage: 800 MILLIGRAM, 3 TIMES A DAY
     Route: 065

REACTIONS (6)
  - Large intestinal ulcer [Unknown]
  - Upper gastrointestinal haemorrhage [Unknown]
  - Perforation [Fatal]
  - Colonic fistula [Unknown]
  - Haemoglobin decreased [Unknown]
  - Sepsis [Unknown]
